FAERS Safety Report 8583668-8 (Version None)
Quarter: 2012Q3

REPORT INFORMATION
  Report Type: 
  Country: None (occurrence: None)
  Receive Date: 20120809
  Receipt Date: 20120724
  Transmission Date: 20120928
  Serious: Yes (Hospitalization)
  Sender: FDA-Public Use
  Company Number: US-009507513-2012SP011808

PATIENT

DRUGS (2)
  1. NUVARING [Suspect]
     Indication: MENSTRUATION IRREGULAR
     Dosage: 0.12-0.015 MG/24 HRS
     Route: 067
     Dates: start: 20091005, end: 20100301
  2. NUVARING [Suspect]
     Indication: CONTRACEPTION

REACTIONS (6)
  - LYMPHADENOPATHY [None]
  - TRANSVERSE SINUS THROMBOSIS [None]
  - MIGRAINE [None]
  - EMOTIONAL DISORDER [None]
  - CARPAL TUNNEL SYNDROME [None]
  - ASTHMA [None]
